FAERS Safety Report 6151955-9 (Version None)
Quarter: 2009Q2

REPORT INFORMATION
  Report Type: 
  Country: None (occurrence: None)
  Receive Date: 20090408
  Receipt Date: 20090402
  Transmission Date: 20091009
  Serious: Yes (Hospitalization)
  Sender: FDA-Public Use
  Company Number: TOR 2009-0016

PATIENT
  Sex: Male

DRUGS (1)
  1. FARESTON [Suspect]
     Indication: DESMOID TUMOUR
     Dosage: 180 MG ORAL
     Route: 048
     Dates: start: 20020101

REACTIONS (1)
  - PANCREATITIS [None]
